FAERS Safety Report 14718736 (Version 1)
Quarter: 2018Q2

REPORT INFORMATION
  Report Type: Spontaneous
  Country: US (occurrence: US)
  Receive Date: 20180405
  Receipt Date: 20180405
  Transmission Date: 20180711
  Serious: No
  Sender: FDA-Public Use
  Company Number: US-JNJFOC-20180325694

PATIENT
  Sex: Female
  Weight: 52.16 kg

DRUGS (3)
  1. FINASTERIDE. [Concomitant]
     Active Substance: FINASTERIDE
     Indication: ALOPECIA
     Route: 065
  2. MENS ROGAINE EXTRA STRENGTH [Suspect]
     Active Substance: MINOXIDIL
     Route: 065
  3. MENS ROGAINE EXTRA STRENGTH [Suspect]
     Active Substance: MINOXIDIL
     Indication: ALOPECIA
     Route: 065

REACTIONS (4)
  - Intentional product misuse [Unknown]
  - Eye swelling [Not Recovered/Not Resolved]
  - Dysgeusia [Recovering/Resolving]
  - Product use issue [Unknown]
